FAERS Safety Report 7589891-3 (Version None)
Quarter: 2011Q2

REPORT INFORMATION
  Report Type: 
  Country: None (occurrence: None)
  Receive Date: 20110627
  Receipt Date: 20110614
  Transmission Date: 20111010
  Serious: Yes (Other)
  Sender: FDA-Public Use
  Company Number: FK201101186

PATIENT
  Age: 19 Year
  Sex: Female

DRUGS (3)
  1. XYLOCAINE [Suspect]
     Indication: ANAESTHESIA PROCEDURE
     Dosage: 10 CC X 4 PARACERVICAL INJECTIONS
  2. FENTANYL [Concomitant]
  3. PROPOFOL [Concomitant]

REACTIONS (4)
  - NYSTAGMUS [None]
  - TOXICITY TO VARIOUS AGENTS [None]
  - GRAND MAL CONVULSION [None]
  - ACCIDENTAL OVERDOSE [None]
